FAERS Safety Report 12964101 (Version 1)
Quarter: 2016Q4

REPORT INFORMATION
  Report Type: Spontaneous
  Country: ES (occurrence: ES)
  Receive Date: 20161122
  Receipt Date: 20161122
  Transmission Date: 20170207
  Serious: Yes (Hospitalization)
  Sender: FDA-Public Use
  Company Number: ES-009507513-1611ESP008695

PATIENT
  Age: 80 Year
  Sex: Female

DRUGS (3)
  1. CYMBALTA [Concomitant]
     Active Substance: DULOXETINE HYDROCHLORIDE
     Indication: DEPRESSION
     Dosage: 60 MG, QD
     Route: 048
     Dates: end: 20160314
  2. REXER [Suspect]
     Active Substance: MIRTAZAPINE
     Indication: DEPRESSION
     Dosage: 30 MG/DAY
     Route: 048
     Dates: start: 20101004, end: 20160317
  3. ZELDOX [Suspect]
     Active Substance: ZIPRASIDONE
     Indication: DEPRESSION
     Dosage: 60MG 16/09/2010, 40 MG FROM 15/12/2010
     Route: 048
     Dates: start: 20101215, end: 20160317

REACTIONS (1)
  - Long QT syndrome [Recovered/Resolved]

NARRATIVE: CASE EVENT DATE: 20160313
